FAERS Safety Report 5513297-1 (Version None)
Quarter: 2007Q4

REPORT INFORMATION
  Report Type: 
  Country: None (occurrence: None)
  Receive Date: 20071112
  Receipt Date: 20071031
  Transmission Date: 20080405
  Serious: Yes (Hospitalization, Other)
  Sender: FDA-Public Use
  Company Number: US-PFIZER INC-2007092253

PATIENT
  Sex: Male
  Weight: 79.545 kg

DRUGS (7)
  1. DILANTIN [Interacting]
     Indication: CONVULSION
     Dates: start: 20070907, end: 20070901
  2. HEPARIN SODIUM [Suspect]
     Indication: THROMBOSIS
     Dates: start: 20070901, end: 20070101
  3. WARFARIN SODIUM [Interacting]
     Indication: THROMBOSIS
  4. KEPPRA [Suspect]
     Dates: start: 20070901, end: 20070901
  5. DIGITEK [Concomitant]
  6. CARDIZEM [Concomitant]
  7. LISINOPRIL [Concomitant]

REACTIONS (20)
  - BACK PAIN [None]
  - BLOOD DISORDER [None]
  - CARDIAC FAILURE [None]
  - CONVULSION [None]
  - DRUG INTERACTION [None]
  - HAEMORRHAGE [None]
  - HEART RATE IRREGULAR [None]
  - INCORRECT DOSE ADMINISTERED [None]
  - INJURY [None]
  - LIMB INJURY [None]
  - MASS [None]
  - MOVEMENT DISORDER [None]
  - MUSCLE HAEMORRHAGE [None]
  - PAIN [None]
  - PAIN IN EXTREMITY [None]
  - PHARMACEUTICAL PRODUCT COMPLAINT [None]
  - RESPIRATORY ARREST [None]
  - SOMNOLENCE [None]
  - THROMBOSIS [None]
  - TRANSIENT ISCHAEMIC ATTACK [None]
